FAERS Safety Report 6684982-3 (Version None)
Quarter: 2010Q2

REPORT INFORMATION
  Report Type: 
  Country: None (occurrence: None)
  Receive Date: 20100416
  Receipt Date: 20100408
  Transmission Date: 20101027
  Serious: Yes (Death)
  Sender: FDA-Public Use
  Company Number: B0646491A

PATIENT

DRUGS (2)
  1. OFATUMUMAB [Suspect]
     Route: 042
  2. CORTICOSTEROID [Concomitant]

REACTIONS (5)
  - ASPERGILLOSIS [None]
  - FUNGAL INFECTION [None]
  - IMMUNOSUPPRESSION [None]
  - INFECTION [None]
  - LYMPHOMA [None]
